FAERS Safety Report 25601761 (Version 1)
Quarter: 2025Q3

REPORT INFORMATION
  Report Type: Spontaneous
  Country: CA (occurrence: CA)
  Receive Date: 20250724
  Receipt Date: 20250724
  Transmission Date: 20251020
  Serious: Yes (Hospitalization, Other)
  Sender: PFIZER
  Company Number: CA-PFIZER INC-202500148656

PATIENT
  Age: 90 Year
  Sex: Female

DRUGS (9)
  1. VYNDAMAX [Suspect]
     Active Substance: TAFAMIDIS
     Indication: Cardiac amyloidosis
     Dosage: 61 MG, 1X/DAY
     Route: 048
     Dates: start: 20231208
  2. APIXABAN [Concomitant]
     Active Substance: APIXABAN
  3. BIMATOPROST [Concomitant]
     Active Substance: BIMATOPROST
  4. FUROSEMIDE [Concomitant]
     Active Substance: FUROSEMIDE
  5. PRAMIPEXOLE [Concomitant]
     Active Substance: PRAMIPEXOLE
  6. PROLIA [Concomitant]
     Active Substance: DENOSUMAB
  7. RAMIPRIL [Concomitant]
     Active Substance: RAMIPRIL
  8. ROSUVASTATIN [Concomitant]
     Active Substance: ROSUVASTATIN
  9. VERAPAMIL [Concomitant]
     Active Substance: VERAPAMIL HYDROCHLORIDE

REACTIONS (3)
  - Pneumonia [Unknown]
  - Urinary tract infection [Unknown]
  - Infection [Unknown]

NARRATIVE: CASE EVENT DATE: 20250101
